FAERS Safety Report 9007356 (Version 1)
Quarter: 2013Q1

REPORT INFORMATION
  Report Type: Spontaneous
  Country: IN (occurrence: IN)
  Receive Date: 20130110
  Receipt Date: 20130110
  Transmission Date: 20140127
  Serious: Yes (Hospitalization)
  Sender: FDA-Public Use
  Company Number: IN-MYLANLABS-2013S1000203

PATIENT
  Age: 24 Year
  Sex: Male

DRUGS (8)
  1. ONDANSETRON [Suspect]
     Indication: GASTROENTERITIS
     Route: 048
  2. OFLOXACIN [Concomitant]
     Indication: GASTROENTERITIS
     Route: 048
  3. ORNIDAZOLE [Concomitant]
     Indication: GASTROENTERITIS
     Route: 048
  4. RIFAMPICIN [Concomitant]
     Indication: PULMONARY TUBERCULOSIS
     Route: 065
  5. ISONIAZID [Concomitant]
     Indication: PULMONARY TUBERCULOSIS
     Route: 065
  6. ETHAMBUTOL [Concomitant]
     Indication: PULMONARY TUBERCULOSIS
     Route: 065
  7. PYRAZINAMIDE [Concomitant]
     Indication: PULMONARY TUBERCULOSIS
     Route: 065
  8. COTRIMOXAZOLE [Concomitant]
     Indication: ANTIFUNGAL PROPHYLAXIS
     Route: 065

REACTIONS (1)
  - Toxic epidermal necrolysis [Recovered/Resolved with Sequelae]
